FAERS Safety Report 18537182 (Version 1)
Quarter: 2020Q4

REPORT INFORMATION
  Report Type: Report from Study
  Country: None (occurrence: AU)
  Receive Date: 20201124
  Receipt Date: 20201124
  Transmission Date: 20210114
  Serious: Yes (Hospitalization, Other)
  Sender: FDA-Public Use
  Company Number: AU-ABBVIE-20K-008-3658666-00

PATIENT
  Age: 80 Year
  Sex: Female

DRUGS (12)
  1. DUODOPA [Suspect]
     Active Substance: CARBIDOPA\LEVODOPA
     Indication: PARKINSON^S DISEASE
     Route: 050
     Dates: start: 20200529, end: 202011
  2. MADOPAR HBS [Concomitant]
     Active Substance: BENSERAZIDE HYDROCHLORIDE\LEVODOPA
     Indication: PARKINSON^S DISEASE
     Dosage: 100/25MG, AT NIGHT.
     Route: 048
     Dates: start: 20201109
  3. OXAZEPAM. [Concomitant]
     Active Substance: OXAZEPAM
     Indication: ANXIETY
     Dosage: AT NIGHT
     Route: 048
     Dates: start: 20201109
  4. AMANTADINE. [Concomitant]
     Active Substance: AMANTADINE HYDROCHLORIDE
     Indication: PARKINSON^S DISEASE
     Dosage: IN THE MORNING AND AT MIDDAY.
     Route: 048
     Dates: start: 20201109
  5. DUODOPA [Suspect]
     Active Substance: CARBIDOPA\LEVODOPA
     Dosage: MD OF 8.8 MLS, CONTINUOUS RATE OF 5.6ML AND AN ED OF 4.2ML WITH A 30 MINUTE LOCKOUT.
     Route: 050
     Dates: start: 202011
  6. STALEVO [Concomitant]
     Active Substance: CARBIDOPA\ENTACAPONE\LEVODOPA
     Indication: PARKINSON^S DISEASE
     Dosage: 125
     Route: 048
     Dates: start: 20201109
  7. SIFROL ER [Concomitant]
     Active Substance: PRAMIPEXOLE
     Indication: PARKINSON^S DISEASE
     Dosage: IN THE MORNING.
     Route: 048
     Dates: start: 20201109
  8. MOVICOL [Concomitant]
     Active Substance: POLYETHYLENE GLYCOL 3350\POTASSIUM CHLORIDE\SODIUM BICARBONATE\SODIUM CHLORIDE
     Indication: CONSTIPATION
     Dosage: AT NIGHT.
     Route: 048
     Dates: start: 20201109
  9. MADOPAR RAPID [Concomitant]
     Indication: PARKINSON^S DISEASE
     Dosage: 50/12.5MG,?3 TABLETS IN THE MORNING.
     Route: 048
     Dates: start: 20201109
  10. MIRTAZAPINE. [Concomitant]
     Active Substance: MIRTAZAPINE
     Indication: PRODUCT USED FOR UNKNOWN INDICATION
     Dosage: AT NIGHT.
     Route: 048
     Dates: start: 20201109
  11. DITROPAN [Concomitant]
     Active Substance: OXYBUTYNIN CHLORIDE
     Indication: HYPERTONIC BLADDER
     Dosage: AT NIGHT.
     Route: 048
     Dates: start: 20201109
  12. ENTACAPONE. [Concomitant]
     Active Substance: ENTACAPONE
     Indication: PARKINSON^S DISEASE
     Route: 048
     Dates: start: 20201109

REACTIONS (8)
  - On and off phenomenon [Not Recovered/Not Resolved]
  - Adverse event [Unknown]
  - Immobile [Unknown]
  - Nightmare [Unknown]
  - Constipation [Unknown]
  - Faecaloma [Unknown]
  - Neurotoxicity [Unknown]
  - Pain [Unknown]

NARRATIVE: CASE EVENT DATE: 2020
